FAERS Safety Report 13375164 (Version 1)
Quarter: 2017Q1

REPORT INFORMATION
  Report Type: Spontaneous
  Country: DE (occurrence: DE)
  Receive Date: 20170327
  Receipt Date: 20170327
  Transmission Date: 20170429
  Serious: Yes (Other)
  Sender: FDA-Public Use
  Company Number: DE-MERCK KGAA-1064709

PATIENT
  Age: 59 Year
  Sex: Female

DRUGS (2)
  1. RADIOIODINE THERAPY (RIT) [Concomitant]
  2. NOVOTHYROX [Suspect]
     Active Substance: LEVOTHYROXINE SODIUM
     Indication: POST PROCEDURAL HYPOTHYROIDISM

REACTIONS (1)
  - Borrelia infection [Unknown]

NARRATIVE: CASE EVENT DATE: 2016
